FAERS Safety Report 25740369 (Version 3)
Quarter: 2025Q4

REPORT INFORMATION
  Report Type: Report from Study
  Country: US (occurrence: US)
  Receive Date: 20250829
  Receipt Date: 20251216
  Transmission Date: 20260117
  Serious: No
  Sender: PFIZER
  Company Number: US-PFIZER INC-202500171706

PATIENT
  Age: 84 Year
  Sex: Female

DRUGS (1)
  1. IBRANCE [Suspect]
     Active Substance: PALBOCICLIB
     Dosage: 100 MG, CYCLIC, TABLET ONCE A DAY FOR 21 DAYS, 7 DAYS OFF

REACTIONS (4)
  - Drug hypersensitivity [Unknown]
  - Alopecia [Unknown]
  - Anxiety [Unknown]
  - Illness [Unknown]
